FAERS Safety Report 5288691-7 (Version None)
Quarter: 2007Q2

REPORT INFORMATION
  Report Type: 
  Country: None (occurrence: None)
  Receive Date: 20070405
  Receipt Date: 20070327
  Transmission Date: 20071010
  Serious: Yes (Hospitalization)
  Sender: FDA-Public Use
  Company Number: 2007CG00511

PATIENT
  Age: 69 Year
  Sex: Female
  Weight: 69 kg

DRUGS (5)
  1. ARIMIDEX [Suspect]
     Indication: BREAST CANCER FEMALE
     Route: 048
     Dates: start: 20020815, end: 20070212
  2. GLYBURIDE [Concomitant]
     Route: 048
  3. INDAPAMIDE [Concomitant]
     Route: 048
  4. GLUCOPHAGE [Concomitant]
     Route: 048
  5. ACARBOSE [Concomitant]
     Route: 048

REACTIONS (1)
  - HEPATIC CIRRHOSIS [None]
